FAERS Safety Report 5659741-0 (Version None)
Quarter: 2008Q1

REPORT INFORMATION
  Report Type: 
  Country: None (occurrence: None)
  Receive Date: 20080311
  Receipt Date: 20070928
  Transmission Date: 20080703
  Serious: No
  Sender: FDA-Public Use
  Company Number: US-BAYER-200712106BCC

PATIENT
  Age: 70 Year
  Sex: Male
  Weight: 98 kg

DRUGS (4)
  1. ALEVE [Suspect]
     Indication: MUSCLE SPASMS
     Dosage: TOTAL DAILY DOSE: 220 MG  UNIT DOSE: 220 MG
     Route: 048
     Dates: start: 20070601
  2. ALEVE [Suspect]
     Dosage: TOTAL DAILY DOSE: 220 MG  UNIT DOSE: 220 MG
     Route: 048
     Dates: start: 20070628
  3. LIPITOR [Concomitant]
  4. SINGULAIR [Concomitant]

REACTIONS (2)
  - HYPOAESTHESIA [None]
  - NAUSEA [None]
